FAERS Safety Report 14565548 (Version 4)
Quarter: 2018Q3

REPORT INFORMATION
  Report Type: Spontaneous
  Country: US (occurrence: US)
  Receive Date: 20180223
  Receipt Date: 20180710
  Transmission Date: 20181010
  Serious: Yes (Life-Threatening, Hospitalization, Other)
  Sender: FDA-Public Use
  Company Number: US-UNITED THERAPEUTICS-UNT-2018-002317

PATIENT
  Age: 63 Year
  Sex: Female
  Weight: 65.76 kg

DRUGS (3)
  1. ADCIRCA [Concomitant]
     Active Substance: TADALAFIL
     Indication: PRODUCT USED FOR UNKNOWN INDICATION
     Dosage: UNK
     Route: 065
  2. REMODULIN [Suspect]
     Active Substance: TREPROSTINIL
     Dosage: 0.121 ?G/KG, CONTINUING
     Route: 041
  3. REMODULIN [Suspect]
     Active Substance: TREPROSTINIL
     Indication: PULMONARY ARTERIAL HYPERTENSION
     Dosage: 0.137 ?G/KG, CONTINUING
     Route: 041
     Dates: start: 20091116

REACTIONS (5)
  - Organising pneumonia [Unknown]
  - Acute respiratory failure [Recovered/Resolved]
  - Oedema [Unknown]
  - Weight decreased [Unknown]
  - Hyperdynamic left ventricle [Unknown]

NARRATIVE: CASE EVENT DATE: 20180215
